FAERS Safety Report 16636583 (Version 1)
Quarter: 2019Q3

REPORT INFORMATION
  Report Type: Spontaneous
  Country: US (occurrence: US)
  Receive Date: 20190726
  Receipt Date: 20190726
  Transmission Date: 20191004
  Serious: Yes (Death)
  Sender: FDA-Public Use
  Company Number: None

PATIENT
  Sex: Male

DRUGS (1)
  1. FARYDAK [Suspect]
     Active Substance: PANOBINOSTAT
     Dosage: ?          OTHER FREQUENCY:MONDAY, WEDNESDAY,;?
     Route: 048
     Dates: start: 20190403

REACTIONS (1)
  - Death [None]
